FAERS Safety Report 25071932 (Version 1)
Quarter: 2025Q1

REPORT INFORMATION
  Report Type: Spontaneous
  Country: NO (occurrence: NO)
  Receive Date: 20250313
  Receipt Date: 20250313
  Transmission Date: 20250408
  Serious: Yes (Other)
  Sender: ABBVIE
  Company Number: None

PATIENT
  Age: 53 Year
  Sex: Female
  Weight: 71 kg

DRUGS (5)
  1. QULIPTA [Suspect]
     Active Substance: ATOGEPANT
     Indication: Migraine
     Route: 048
     Dates: start: 20250221, end: 20250303
  2. SPIRIVA RESPIMAT [Concomitant]
     Active Substance: TIOTROPIUM BROMIDE
     Indication: Asthma
     Dosage: LIQUID, SOLUTION 2.5 MICROGRAM
  3. FLUTICASONE FUROATE\VILANTEROL TRIFENATATE [Concomitant]
     Active Substance: FLUTICASONE FUROATE\VILANTEROL TRIFENATATE
     Indication: Asthma
     Dosage: INH PULV, DISP 184 MIKROG/22 MIKROG
  4. ALBUTEROL [Concomitant]
     Active Substance: ALBUTEROL
     Indication: Asthma
  5. CARBIMAZOLE [Concomitant]
     Active Substance: CARBIMAZOLE
     Indication: Hyperthyroidism
     Dosage: TAB 5 MG
     Dates: start: 20250131

REACTIONS (12)
  - Pharyngeal swelling [Recovered/Resolved]
  - Somnolence [Not Recovered/Not Resolved]
  - Insomnia [Not Recovered/Not Resolved]
  - Dyspnoea [Recovered/Resolved]
  - Myalgia [Not Recovered/Not Resolved]
  - Nausea [Recovering/Resolving]
  - Fatigue [Not Recovered/Not Resolved]
  - Disturbance in attention [Not Recovered/Not Resolved]
  - Dizziness [Recovering/Resolving]
  - Musculoskeletal stiffness [Not Recovered/Not Resolved]
  - Swollen tongue [Recovered/Resolved]
  - Hypersensitivity [Recovered/Resolved]

NARRATIVE: CASE EVENT DATE: 20250223
